FAERS Safety Report 14738586 (Version 7)
Quarter: 2018Q2

REPORT INFORMATION
  Report Type: Spontaneous
  Country: SE (occurrence: SE)
  Receive Date: 20180409
  Receipt Date: 20180529
  Transmission Date: 20180711
  Serious: Yes (Hospitalization, Other)
  Sender: FDA-Public Use
  Company Number: SE-PFIZER INC-2018140245

PATIENT
  Age: 40 Year
  Sex: Male

DRUGS (1)
  1. CAVERJECT [Suspect]
     Active Substance: ALPROSTADIL
     Indication: ERECTILE DYSFUNCTION
     Dosage: 20 UG, AS NEEDED
     Route: 042
     Dates: start: 201711, end: 20180402

REACTIONS (4)
  - Penile pain [Recovering/Resolving]
  - Foreign body in reproductive tract [Recovered/Resolved]
  - Product quality issue [Recovered/Resolved]
  - Penile curvature [Recovering/Resolving]

NARRATIVE: CASE EVENT DATE: 2018
